FAERS Safety Report 7898185-8 (Version None)
Quarter: 2011Q4

REPORT INFORMATION
  Report Type: 
  Country: None (occurrence: None)
  Receive Date: 20111107
  Receipt Date: 20111026
  Transmission Date: 20120403
  Serious: Yes (Hospitalization)
  Sender: FDA-Public Use
  Company Number: US-GLAXOSMITHKLINE-A0798473A

PATIENT
  Age: 47 Year
  Sex: Female

DRUGS (6)
  1. AVANDIA [Suspect]
     Indication: TYPE 2 DIABETES MELLITUS
     Dosage: 8MG PER DAY
     Route: 048
  2. METOPROLOL [Concomitant]
     Dates: end: 20090101
  3. DIOVAN HCT [Concomitant]
  4. METFORMIN HCL [Concomitant]
  5. CLONIDINE [Concomitant]
  6. VERAPAMIL [Concomitant]

REACTIONS (2)
  - CARDIAC FAILURE CONGESTIVE [None]
  - CEREBROVASCULAR ACCIDENT [None]
